FAERS Safety Report 8232856-9 (Version None)
Quarter: 2012Q1

REPORT INFORMATION
  Report Type: 
  Country: None (occurrence: None)
  Receive Date: 20120324
  Receipt Date: 20120320
  Transmission Date: 20120608
  Serious: Yes (Death, Other)
  Sender: FDA-Public Use
  Company Number: RU-ASTRAZENECA-2012SE18789

PATIENT
  Age: 72 Year
  Sex: Male
  Weight: 80 kg

DRUGS (2)
  1. DILTIAZEM HCL [Concomitant]
     Indication: CORONARY ARTERY DISEASE
     Route: 048
  2. SYMBICORT [Suspect]
     Indication: ASTHMA
     Dosage: 160/4.5, UNKNOWN FREQUENCY
     Route: 055
     Dates: start: 20100101

REACTIONS (2)
  - ANGINA PECTORIS [None]
  - CORONARY ARTERY DISEASE [None]
